FAERS Safety Report 16960837 (Version 1)
Quarter: 2019Q4

REPORT INFORMATION
  Report Type: Spontaneous
  Country: IT (occurrence: IT)
  Receive Date: 20191025
  Receipt Date: 20191025
  Transmission Date: 20200122
  Serious: Yes (Hospitalization)
  Sender: FDA-Public Use
  Company Number: IT-ACCORD-158976

PATIENT
  Age: 36 Year
  Sex: Male

DRUGS (2)
  1. LEVETIRACETAM. [Suspect]
     Active Substance: LEVETIRACETAM
     Indication: EPILEPSY
     Dosage: LAST RECEIVED 03-OCT-2019
     Route: 048
     Dates: start: 20151001
  2. DEPAKIN CHRONO [Suspect]
     Active Substance: VALPROIC ACID
     Indication: EPILEPSY
     Dosage: STRENGTH-300 MG,LAST RECEIVED 03-OCT-2019
     Route: 048
     Dates: start: 20151001

REACTIONS (2)
  - Drug ineffective [Unknown]
  - Epilepsy [Recovering/Resolving]

NARRATIVE: CASE EVENT DATE: 20191003
